FAERS Safety Report 6074589-3 (Version None)
Quarter: 2009Q1

REPORT INFORMATION
  Report Type: 
  Country: None (occurrence: None)
  Receive Date: 20090209
  Receipt Date: 20090126
  Transmission Date: 20090719
  Serious: No
  Sender: FDA-Public Use
  Company Number: 060001K09USA

PATIENT
  Age: 30 Year
  Sex: Female

DRUGS (1)
  1. SEROPHENE [Suspect]
     Indication: ANOVULATORY CYCLE

REACTIONS (1)
  - NO ADVERSE EVENT [None]
